FAERS Safety Report 12384082 (Version 6)
Quarter: 2019Q3

REPORT INFORMATION
  Report Type: Report from Study
  Country: US (occurrence: US)
  Receive Date: 20160519
  Receipt Date: 20190824
  Transmission Date: 20191004
  Serious: Yes (Hospitalization, Other)
  Sender: FDA-Public Use
  Company Number: US-AMGEN-USASL2016063825

PATIENT
  Age: 67 Year
  Sex: Female

DRUGS (16)
  1. ENBREL [Suspect]
     Active Substance: ETANERCEPT
     Dosage: 50 MILLIGRAM, QWK
     Route: 065
  2. LOVAZA [Suspect]
     Active Substance: OMEGA-3-ACID ETHYL ESTERS
     Indication: HYPERLIPIDAEMIA
     Dosage: UNK
     Route: 065
  3. ATORVASTATIN [Concomitant]
     Active Substance: ATORVASTATIN
     Dosage: UNK
  4. CALCIUM [Concomitant]
     Active Substance: CALCIUM
     Dosage: UNK
  5. MAGNESIUM [Concomitant]
     Active Substance: MAGNESIUM
     Dosage: UNK
  6. BIOTIN [Concomitant]
     Active Substance: BIOTIN
     Dosage: UNK
  7. ENBREL [Suspect]
     Active Substance: ETANERCEPT
     Dosage: 50 MILLIGRAM, QWK
     Route: 065
     Dates: end: 2005
  8. ALENDRONATE [Concomitant]
     Active Substance: ALENDRONATE SODIUM
     Dosage: UNK
  9. EPIPEN [Concomitant]
     Active Substance: EPINEPHRINE
     Indication: RUBBER SENSITIVITY
     Dosage: UNK
  10. LISINOPRIL. [Concomitant]
     Active Substance: LISINOPRIL
     Dosage: UNK
  11. ENBREL [Suspect]
     Active Substance: ETANERCEPT
     Dosage: 50 MILLIGRAM, QWK
     Route: 065
     Dates: end: 201804
  12. ENBREL [Suspect]
     Active Substance: ETANERCEPT
     Dosage: 50 MILLIGRAM, QWK
     Route: 065
     Dates: start: 20180416
  13. LEVOTHYROXINE. [Concomitant]
     Active Substance: LEVOTHYROXINE
     Indication: HYPOTHYROIDISM
  14. VITAMIN D3 [Concomitant]
     Active Substance: CHOLECALCIFEROL
     Dosage: UNK
  15. ASPIRIN. [Concomitant]
     Active Substance: ASPIRIN
     Dosage: UNK
  16. ENBREL [Suspect]
     Active Substance: ETANERCEPT
     Indication: RHEUMATOID ARTHRITIS
     Dosage: 50 MILLIGRAM, QWK
     Route: 065
     Dates: start: 1997

REACTIONS (50)
  - Rheumatoid arthritis [Unknown]
  - Fall [Unknown]
  - Glucose tolerance impaired [Not Recovered/Not Resolved]
  - Head injury [Unknown]
  - Feeling abnormal [Unknown]
  - Actinic keratosis [Not Recovered/Not Resolved]
  - Headache [Not Recovered/Not Resolved]
  - Unevaluable event [Unknown]
  - Tooth loss [Unknown]
  - Malaise [Not Recovered/Not Resolved]
  - Fatigue [Unknown]
  - Wrong technique in product usage process [Unknown]
  - Deafness [Not Recovered/Not Resolved]
  - Chest pain [Unknown]
  - Localised infection [Not Recovered/Not Resolved]
  - Joint swelling [Not Recovered/Not Resolved]
  - Hyperlipidaemia [Not Recovered/Not Resolved]
  - Hyperkeratosis [Recovering/Resolving]
  - Gingival disorder [Not Recovered/Not Resolved]
  - Hypoacusis [Unknown]
  - Hernia [Unknown]
  - Nasopharyngitis [Not Recovered/Not Resolved]
  - Bone loss [Not Recovered/Not Resolved]
  - Muscle spasms [Unknown]
  - Macular degeneration [Recovering/Resolving]
  - Hypothyroidism [Not Recovered/Not Resolved]
  - Hyperthyroidism [Not Recovered/Not Resolved]
  - Asthma [Unknown]
  - Back pain [Not Recovered/Not Resolved]
  - Facial pain [Not Recovered/Not Resolved]
  - Alopecia [Unknown]
  - Skin laceration [Not Recovered/Not Resolved]
  - Therapeutic product effect decreased [Unknown]
  - Tachycardia [Unknown]
  - Bone disorder [Not Recovered/Not Resolved]
  - Coronary artery disease [Not Recovered/Not Resolved]
  - Dizziness [Not Recovered/Not Resolved]
  - Body height decreased [Unknown]
  - Accidental exposure to product [Unknown]
  - Myocardial infarction [Recovered/Resolved]
  - Deafness neurosensory [Not Recovered/Not Resolved]
  - Pulmonary fibrosis [Unknown]
  - Injection site haemorrhage [Unknown]
  - Pain [Not Recovered/Not Resolved]
  - Eustachian tube obstruction [Not Recovered/Not Resolved]
  - Obesity [Not Recovered/Not Resolved]
  - Vitamin D increased [Unknown]
  - Tooth disorder [Not Recovered/Not Resolved]
  - Hypertension [Unknown]
  - Sciatica [Not Recovered/Not Resolved]

NARRATIVE: CASE EVENT DATE: 2005
